FAERS Safety Report 21625566 (Version 1)
Quarter: 2022Q4

REPORT INFORMATION
  Report Type: Other
  Country: US (occurrence: None)
  Receive Date: 20221122
  Receipt Date: 20221122
  Transmission Date: 20230113
  Serious: No
  Sender: FDA-Public Use
  Company Number: US-ROCHE-3003006

PATIENT
  Age: 28 Year
  Sex: Female

DRUGS (5)
  1. TRASTUZUMAB [Suspect]
     Active Substance: TRASTUZUMAB
     Indication: Invasive ductal breast carcinoma
     Dosage: FIRST CYCLE AT 2 MG/KG EVERY WEEK AND SUBSEQUENT CYCLES AT 6 MG/KG EVERY THIRD WEEK
     Route: 065
  2. PERTUZUMAB [Concomitant]
     Active Substance: PERTUZUMAB
     Dosage: FIRST CYCLE AT 2 MG/KG EVERY WEEK AND SUBSEQUENT CYCLES AT 6 MG/KG EVERY THIRD WEEK
     Route: 065
  3. NEULASTA [Concomitant]
     Active Substance: PEGFILGRASTIM
     Route: 058
  4. PACLITAXEL [Concomitant]
     Active Substance: PACLITAXEL
     Dosage: FIRST CYCLE AT 2 MG/KG EVERY WEEK AND SUBSEQUENT CYCLES AT 6 MG/KG EVERY THIRD WEEK
  5. DOCETAXEL [Concomitant]
     Active Substance: DOCETAXEL
     Dosage: FIRST CYCLE AT 2 MG/KG EVERY WEEK AND SUBSEQUENT CYCLES AT 6 MG/KG EVERY THIRD WEEK

REACTIONS (1)
  - Palmar-plantar erythrodysaesthesia syndrome [Recovered/Resolved]
